FAERS Safety Report 10050920 (Version 2)
Quarter: 2014Q2

REPORT INFORMATION
  Report Type: Spontaneous
  Country: US (occurrence: US)
  Receive Date: 20140401
  Receipt Date: 20140530
  Transmission Date: 20141212
  Serious: Yes (Hospitalization)
  Sender: FDA-Public Use
  Company Number: US-GLAXOSMITHKLINE-A1066518A

PATIENT
  Age: 49 Year
  Sex: Female

DRUGS (13)
  1. VENTOLIN [Suspect]
     Indication: ASTHMA
     Dosage: 2PUFF TWICE PER DAY
     Route: 055
     Dates: start: 2004
  2. WELLBUTRIN [Concomitant]
  3. SINGULAIR [Concomitant]
  4. PRILOSEC [Concomitant]
  5. LIPITOR [Concomitant]
  6. ADVAIR DISKUS [Concomitant]
  7. ALBUTEROL SOLUTION [Concomitant]
  8. VITAMIN D3 [Concomitant]
  9. COQ10 [Concomitant]
  10. OMEGA FISH OIL [Concomitant]
  11. XANAX [Concomitant]
  12. CEFZIL [Concomitant]
  13. LEVOFLOXACIN [Concomitant]

REACTIONS (8)
  - Myocardial infarction [Unknown]
  - Pneumonia [Unknown]
  - Visual impairment [Not Recovered/Not Resolved]
  - Chronic obstructive pulmonary disease [Unknown]
  - Bronchitis [Unknown]
  - Lung disorder [Unknown]
  - Drug ineffective [Unknown]
  - Product quality issue [Unknown]
